FAERS Safety Report 13336760 (Version 1)
Quarter: 2017Q1

REPORT INFORMATION
  Report Type: Spontaneous
  Country: US (occurrence: US)
  Receive Date: 20170314
  Receipt Date: 20170314
  Transmission Date: 20170428
  Serious: Yes (Other)
  Sender: FDA-Public Use
  Company Number: None

PATIENT
  Age: 73 Year
  Sex: Female
  Weight: 61.65 kg

DRUGS (11)
  1. UNISON [Concomitant]
  2. CALCIUM [Concomitant]
     Active Substance: CALCIUM
  3. LOW DOSE ASPIRIN [Concomitant]
     Active Substance: ASPIRIN
  4. VITAMIN D2 [Concomitant]
     Active Substance: ERGOCALCIFEROL
  5. CENTRUM MULTI FOR WOMEN [Concomitant]
  6. MEMANTINE. [Concomitant]
     Active Substance: MEMANTINE
  7. NEXIUM OC [Concomitant]
  8. KETOCONAZOLE. [Concomitant]
     Active Substance: KETOCONAZOLE
  9. EXELON PATCH- RIVASTIGMINE [Concomitant]
  10. PROLIA [Suspect]
     Active Substance: DENOSUMAB
     Indication: OSTEOPOROSIS
     Dosage: ?          OTHER FREQUENCY:EVERY 6 MONTHS;OTHER ROUTE:INJECTED INTO BELLY BUTTON?
     Dates: start: 20160706
  11. LOSARTIN POTASSIUM 100 MG UNKNOWN [Concomitant]
     Active Substance: LOSARTAN POTASSIUM

REACTIONS (3)
  - Aspartate aminotransferase increased [None]
  - Alanine aminotransferase increased [None]
  - Liver injury [None]

NARRATIVE: CASE EVENT DATE: 20170131
